FAERS Safety Report 7902638-3 (Version None)
Quarter: 2011Q4

REPORT INFORMATION
  Report Type: 
  Country: None (occurrence: None)
  Receive Date: 20111108
  Receipt Date: 20111101
  Transmission Date: 20120403
  Serious: Yes (Other)
  Sender: FDA-Public Use
  Company Number: US-US-EMD SERONO, INC.-7091893

PATIENT
  Sex: Male

DRUGS (7)
  1. VIAGRA [Concomitant]
     Indication: ERECTILE DYSFUNCTION
     Route: 048
  2. UNSPECIFIED ANTIDEPRESSANTS [Concomitant]
     Dates: end: 20110801
  3. PROPRANOLOL [Concomitant]
  4. GABAPENTIN [Concomitant]
     Indication: PAIN
     Route: 048
  5. DAYTRANA [Concomitant]
     Indication: ATTENTION DEFICIT/HYPERACTIVITY DISORDER
     Dosage: 9-HOUR
     Route: 062
  6. CLONAZEPAM [Concomitant]
     Indication: ANXIETY
     Route: 048
     Dates: end: 20110801
  7. REBIF [Suspect]
     Indication: MULTIPLE SCLEROSIS
     Route: 058
     Dates: start: 20090107

REACTIONS (3)
  - SYNCOPE [None]
  - RIB FRACTURE [None]
  - FALL [None]
